FAERS Safety Report 17548190 (Version 1)
Quarter: 2020Q1

REPORT INFORMATION
  Report Type: Spontaneous
  Country: US (occurrence: US)
  Receive Date: 20200317
  Receipt Date: 20200317
  Transmission Date: 20200409
  Serious: No
  Sender: FDA-Public Use
  Company Number: US-TEVA-2020-US-1198346

PATIENT
  Sex: Male
  Weight: 61.69 kg

DRUGS (1)
  1. SILDENAFIL. [Suspect]
     Active Substance: SILDENAFIL
     Indication: SEXUAL DYSFUNCTION
     Dosage: SILDENAFIL 100 MG BY MOUTH AS NEEDED
     Route: 048
     Dates: start: 202001

REACTIONS (2)
  - Product substitution issue [Unknown]
  - Drug ineffective [Not Recovered/Not Resolved]
